FAERS Safety Report 6590763-1 (Version None)
Quarter: 2010Q1

REPORT INFORMATION
  Report Type: 
  Country: None (occurrence: None)
  Receive Date: 20100219
  Receipt Date: 20100208
  Transmission Date: 20100710
  Serious: Yes (Death)
  Sender: FDA-Public Use
  Company Number: US-JNJFOC-20091100724

PATIENT
  Sex: Female

DRUGS (6)
  1. REMICADE [Suspect]
     Indication: RHEUMATOID ARTHRITIS
     Dosage: DURATION = APPROXIMATELY 1.5 YEARS
     Route: 042
  2. FOSAMAX [Concomitant]
  3. PREDNISONE [Concomitant]
  4. LOTENSIN [Concomitant]
  5. LIPITOR [Concomitant]
  6. PAXIL [Concomitant]

REACTIONS (9)
  - ANAEMIA [None]
  - CELLULITIS [None]
  - FUNGAL INFECTION [None]
  - GASTROINTESTINAL HAEMORRHAGE [None]
  - IMPAIRED HEALING [None]
  - LIVER FUNCTION TEST ABNORMAL [None]
  - RENAL FAILURE [None]
  - RESPIRATORY FAILURE [None]
  - UPPER RESPIRATORY TRACT INFECTION [None]
